FAERS Safety Report 5877450-X (Version None)
Quarter: 2008Q3

REPORT INFORMATION
  Report Type: 
  Country: None (occurrence: None)
  Receive Date: 20080909
  Receipt Date: 20080821
  Transmission Date: 20090109
  Serious: Yes (Hospitalization, Other)
  Sender: FDA-Public Use
  Company Number: S06-USA-04273-01

PATIENT
  Age: 64 Year
  Sex: Female

DRUGS (10)
  1. ARMOUR THYROID (THYROID) (120 MILLIGRAM, TABLETS) [Suspect]
     Indication: HYPOTHYROIDISM
     Dosage: 120 MG (120 MG, ONCE A DAY), ORAL
     Route: 048
     Dates: start: 19970101, end: 20080521
  2. ARMOUR THYROID (THYROID) (60 MILLIGRAM, TABLETS) [Suspect]
     Indication: HYPOTHYROIDISM
     Dosage: 120 MG, (60 MG, 2 IN 1 D), ORAL
     Route: 048
     Dates: start: 20080606
  3. HYDROCHLOROTHIAZIDE [Concomitant]
  4. DIGITALIS (DIGITALIS) (DIGITALIS) [Concomitant]
  5. FUROSEMIDE [Concomitant]
  6. VITAMIN B COMPLEX CAP [Concomitant]
  7. POTASSIUM (POTASSIUM) (POTASSIUM) [Concomitant]
  8. MULTI-VITAMIN [Concomitant]
  9. GARLIC (GARLIC) (GARLIC) [Concomitant]
  10. PROCRIT [Concomitant]

REACTIONS (14)
  - ABNORMAL SENSATION IN EYE [None]
  - ANAEMIA [None]
  - DEVICE ELECTRICAL FINDING [None]
  - DRUG DOSE OMISSION [None]
  - DRUG INEFFECTIVE [None]
  - ECONOMIC PROBLEM [None]
  - EYE HAEMORRHAGE [None]
  - FATIGUE [None]
  - FEELING ABNORMAL [None]
  - HYPERPARATHYROIDISM [None]
  - NEPHROLITHIASIS [None]
  - OEDEMA PERIPHERAL [None]
  - REFUSAL OF TREATMENT BY PATIENT [None]
  - SWELLING FACE [None]
